FAERS Safety Report 24116360 (Version 1)
Quarter: 2024Q3

REPORT INFORMATION
  Report Type: Spontaneous
  Country: NO (occurrence: NO)
  Receive Date: 20240722
  Receipt Date: 20240722
  Transmission Date: 20241017
  Serious: Yes (Other)
  Sender: NOVO NORDISK
  Company Number: None

PATIENT
  Age: 53 Year
  Sex: Male

DRUGS (1)
  1. WEGOVY [Suspect]
     Active Substance: SEMAGLUTIDE
     Indication: Overweight
     Dosage: 2.4 MG, QW(CONTINUED USE OF MEDICINAL PRODUCT)
     Route: 058
     Dates: start: 20240304

REACTIONS (4)
  - Iridocyclitis [Recovering/Resolving]
  - Ulcerative keratitis [Recovering/Resolving]
  - Eye pain [Recovering/Resolving]
  - Scleritis [Recovering/Resolving]

NARRATIVE: CASE EVENT DATE: 20240616
